FAERS Safety Report 23957942 (Version 4)
Quarter: 2024Q3

REPORT INFORMATION
  Report Type: Report from Study
  Country: KR (occurrence: KR)
  Receive Date: 20240610
  Receipt Date: 20240805
  Transmission Date: 20241016
  Serious: Yes (Other)
  Sender: NOVARTIS
  Company Number: KR-002147023-NVSC2024KR120237

PATIENT
  Age: 41 Year
  Sex: Female

DRUGS (16)
  1. KISQALI [Suspect]
     Active Substance: RIBOCICLIB
     Indication: Hormone receptor positive HER2 negative breast cancer
     Dosage: 600 MG, QD
     Route: 048
     Dates: start: 20240226, end: 20240317
  2. KISQALI [Suspect]
     Active Substance: RIBOCICLIB
     Dosage: 600 MG, QD
     Route: 048
     Dates: start: 20240327, end: 20240416
  3. KISQALI [Suspect]
     Active Substance: RIBOCICLIB
     Dosage: 600 MG, QD
     Route: 048
     Dates: start: 20240424, end: 20240514
  4. KISQALI [Suspect]
     Active Substance: RIBOCICLIB
     Dosage: 600 MG, QD
     Route: 048
     Dates: start: 20240522, end: 20240611
  5. KISQALI [Suspect]
     Active Substance: RIBOCICLIB
     Dosage: 600 MG, QD
     Route: 048
     Dates: start: 20240619, end: 20240709
  6. KISQALI [Suspect]
     Active Substance: RIBOCICLIB
     Dosage: 600 MG, QD
     Route: 048
     Dates: start: 20240717
  7. FEMARA [Concomitant]
     Active Substance: LETROZOLE
     Indication: Breast cancer
     Dosage: 2.5 MG, QD
     Route: 048
     Dates: start: 20240226
  8. GOSERELIN [Concomitant]
     Active Substance: GOSERELIN
     Indication: Breast cancer
     Dosage: 3.78 MG, QD
     Route: 058
     Dates: start: 20240226, end: 20240226
  9. GOSERELIN [Concomitant]
     Active Substance: GOSERELIN
     Dosage: 3.78 MG, QD
     Route: 058
     Dates: start: 20240327, end: 20240327
  10. GOSERELIN [Concomitant]
     Active Substance: GOSERELIN
     Dosage: 3.78 MG, QD
     Route: 058
     Dates: start: 20240424, end: 20240424
  11. GOSERELIN [Concomitant]
     Active Substance: GOSERELIN
     Dosage: 3.78 MG, QD
     Route: 058
     Dates: start: 20240522, end: 20240522
  12. GOSERELIN [Concomitant]
     Active Substance: GOSERELIN
     Dosage: 3.78 MG, QD
     Route: 058
     Dates: start: 20240619, end: 20240619
  13. XGEVA [Concomitant]
     Active Substance: DENOSUMAB
     Indication: Prophylaxis
     Dosage: 120 MG, QD
     Route: 058
     Dates: start: 20240327, end: 20240327
  14. XGEVA [Concomitant]
     Active Substance: DENOSUMAB
     Dosage: 120 MG, QD
     Route: 058
     Dates: start: 20240424, end: 20240424
  15. XGEVA [Concomitant]
     Active Substance: DENOSUMAB
     Dosage: 120 MG, QD
     Route: 058
     Dates: start: 20240522, end: 20240522
  16. XGEVA [Concomitant]
     Active Substance: DENOSUMAB
     Dosage: 120 MG, QD
     Route: 058
     Dates: start: 20240619, end: 20240619

REACTIONS (5)
  - Neutropenia [Recovered/Resolved with Sequelae]
  - Neutropenia [Recovered/Resolved]
  - Back pain [Recovering/Resolving]
  - Abdominal pain [Not Recovered/Not Resolved]
  - Oropharyngeal pain [Not Recovered/Not Resolved]

NARRATIVE: CASE EVENT DATE: 20240301
